FAERS Safety Report 4388098-0 (Version None)
Quarter: 2004Q2

REPORT INFORMATION
  Report Type: 
  Country: None (occurrence: None)
  Receive Date: 20040623
  Receipt Date: 20040618
  Transmission Date: 20050107
  Serious: Yes (Hospitalization)
  Sender: FDA-Public Use
  Company Number: KII-2004-0011436

PATIENT
  Age: 2 Year
  Sex: Male

DRUGS (1)
  1. OXYCODONE HCL [Suspect]
     Dosage: SINGLE, ORAL
     Route: 048

REACTIONS (2)
  - ACCIDENTAL EXPOSURE [None]
  - LETHARGY [None]
